FAERS Safety Report 20446635 (Version 1)
Quarter: 2022Q1

REPORT INFORMATION
  Report Type: Spontaneous
  Country: US (occurrence: US)
  Receive Date: 20220208
  Receipt Date: 20220208
  Transmission Date: 20220423
  Serious: No
  Sender: FDA-Public Use
  Company Number: US-IBSA PHARMA INC.-2021IBS000184

PATIENT

DRUGS (6)
  1. TIROSINT-SOL [Suspect]
     Active Substance: LEVOTHYROXINE SODIUM
     Indication: Hypothyroidism
     Dosage: 50 ?G, QD
     Route: 048
     Dates: start: 20210830, end: 2021
  2. TIROSINT-SOL [Suspect]
     Active Substance: LEVOTHYROXINE SODIUM
     Dosage: UNK, 7 DAYS A WEEK
     Route: 048
     Dates: start: 202109
  3. ELIQUIS [Concomitant]
     Active Substance: APIXABAN
     Indication: Product used for unknown indication
     Dosage: 5 MG, BID
     Route: 048
  4. PEPCID                             /00706001/ [Concomitant]
     Indication: Product used for unknown indication
     Dosage: UNK, AS NEEDED
     Route: 048
  5. PROTONIX                           /00661201/ [Concomitant]
     Indication: Product used for unknown indication
     Dosage: UNK, AS NEEDED
     Route: 048
  6. DIAZEPAM [Concomitant]
     Active Substance: DIAZEPAM
     Indication: Product used for unknown indication
     Dosage: 5 MG, BID
     Route: 048

REACTIONS (10)
  - Abdominal discomfort [Recovering/Resolving]
  - Flatulence [Unknown]
  - Eructation [Unknown]
  - Condition aggravated [Unknown]
  - Somnolence [Unknown]
  - Abdominal pain upper [Recovering/Resolving]
  - Fatigue [Unknown]
  - Alopecia [Unknown]
  - Blood thyroid stimulating hormone increased [Unknown]
  - Drug ineffective [Unknown]

NARRATIVE: CASE EVENT DATE: 20210101
